FAERS Safety Report 7238900-X (Version None)
Quarter: 2011Q1

REPORT INFORMATION
  Report Type: 
  Country: None (occurrence: None)
  Receive Date: 20110121
  Receipt Date: 20110119
  Transmission Date: 20110831
  Serious: Yes (Death, Other)
  Sender: FDA-Public Use
  Company Number: PHHO2011JP00789

PATIENT
  Sex: Female
  Weight: 60 kg

DRUGS (8)
  1. ENALAPRIL MALEATE [Suspect]
     Dosage: 20 MG, QD
     Route: 048
     Dates: start: 20101224
  2. ARTIST [Concomitant]
     Indication: CARDIAC FAILURE CHRONIC
  3. ENALAPRIL MALEATE [Suspect]
     Indication: CARDIAC FAILURE
     Dosage: 10 MG, QD
     Route: 048
     Dates: start: 20101211, end: 20101223
  4. ENALAPRIL MALEATE [Suspect]
     Indication: CARDIAC FAILURE
     Dosage: NO TREATMENT
  5. BLINDED NO TREATMENT RECEIVED [Suspect]
     Indication: CARDIAC FAILURE
     Dosage: NO TREATMENT
  6. LASIX [Concomitant]
     Indication: CARDIAC FAILURE CHRONIC
     Dosage: UNK
  7. BLINDED ALISKIREN [Suspect]
     Indication: CARDIAC FAILURE
     Dosage: NO TREATMENT
  8. PURSENNID [Concomitant]
     Indication: CONSTIPATION

REACTIONS (7)
  - RESUSCITATION [None]
  - CARDIO-RESPIRATORY ARREST [None]
  - ARRHYTHMIA [None]
  - LOSS OF CONSCIOUSNESS [None]
  - BLOOD PRESSURE IMMEASURABLE [None]
  - PUPILLARY REFLEX IMPAIRED [None]
  - NASOPHARYNGITIS [None]
